FAERS Safety Report 20217052 (Version 1)
Quarter: 2021Q4

REPORT INFORMATION
  Report Type: Spontaneous
  Country: CN (occurrence: CN)
  Receive Date: 20211222
  Receipt Date: 20211222
  Transmission Date: 20220304
  Serious: Yes (Death, Other)
  Sender: FDA-Public Use
  Company Number: CN-PFIZER INC-202101783923

PATIENT
  Age: 54 Year
  Sex: Male

DRUGS (9)
  1. CYTARABINE [Suspect]
     Active Substance: CYTARABINE
     Indication: Acute myelomonocytic leukaemia
     Dosage: 150 MG, DAILY
  2. IDARUBICIN HYDROCHLORIDE [Suspect]
     Active Substance: IDARUBICIN HYDROCHLORIDE
     Indication: Acute myelomonocytic leukaemia
     Dosage: 20 MG, DAILY
  3. IDARUBICIN HYDROCHLORIDE [Suspect]
     Active Substance: IDARUBICIN HYDROCHLORIDE
     Dosage: 15 MG, DAILY
  4. ETOPOSIDE [Suspect]
     Active Substance: ETOPOSIDE
     Indication: Acute myelomonocytic leukaemia
  5. PIRARUBICIN [Suspect]
     Active Substance: PIRARUBICIN
     Indication: Acute myelomonocytic leukaemia
  6. TACROLIMUS [Concomitant]
     Active Substance: TACROLIMUS
     Dosage: 2 MG, 2X/DAY
  7. TACROLIMUS [Concomitant]
     Active Substance: TACROLIMUS
     Dosage: 0.5 MG, 2X/DAY
  8. MYCOPHENOLATE MOFETIL [Concomitant]
     Active Substance: MYCOPHENOLATE MOFETIL
     Dosage: 0.5 G, 2X/DAY
  9. MYCOPHENOLATE MOFETIL [Concomitant]
     Active Substance: MYCOPHENOLATE MOFETIL
     Dosage: 0.25 G, 2X/DAY

REACTIONS (9)
  - Respiratory failure [Fatal]
  - Circulatory collapse [Fatal]
  - Pneumonia [Fatal]
  - Myelosuppression [Unknown]
  - Septic shock [Unknown]
  - Acute respiratory distress syndrome [Unknown]
  - Oral infection [Unknown]
  - Bacterial infection [Unknown]
  - Fungal infection [Unknown]
